FAERS Safety Report 7582469-7 (Version None)
Quarter: 2011Q2

REPORT INFORMATION
  Report Type: 
  Country: None (occurrence: None)
  Receive Date: 20110630
  Receipt Date: 20110616
  Transmission Date: 20111010
  Serious: Yes (Other)
  Sender: FDA-Public Use
  Company Number: US-JNJFOC-20110611347

PATIENT
  Age: 69 Year
  Sex: Female
  Weight: 93.44 kg

DRUGS (3)
  1. DIURETIC [Concomitant]
     Indication: CARDIAC FAILURE CONGESTIVE
  2. MINOXIDIL [Suspect]
     Route: 061
  3. MINOXIDIL [Suspect]
     Indication: ALOPECIA
     Route: 061

REACTIONS (2)
  - CARDIAC DISORDER [None]
  - APPLICATION SITE PRURITUS [None]
